FAERS Safety Report 9742630 (Version 1)
Quarter: 2013Q4

REPORT INFORMATION
  Report Type: Spontaneous
  Country: US (occurrence: US)
  Receive Date: 20131210
  Receipt Date: 20131210
  Transmission Date: 20140711
  Serious: No
  Sender: FDA-Public Use
  Company Number: US-GILEAD-2009-0024800

PATIENT
  Sex: Female
  Weight: 65.32 kg

DRUGS (12)
  1. LETAIRIS [Suspect]
     Indication: PULMONARY ARTERIAL HYPERTENSION
     Route: 048
     Dates: start: 20081209
  2. ASPIRIN [Concomitant]
  3. COQ10 [Concomitant]
  4. ADVIL [Concomitant]
  5. CIPRO [Concomitant]
  6. BETA-CAROTENE [Concomitant]
  7. VITAMIN C [Concomitant]
  8. CINNAMON [Concomitant]
  9. VITAMIN E [Concomitant]
  10. CALCIUM [Concomitant]
  11. MULTIVITAMINS [Concomitant]
  12. FISH OIL [Concomitant]

REACTIONS (1)
  - Epistaxis [Unknown]
